FAERS Safety Report 7554678-4 (Version None)
Quarter: 2011Q2

REPORT INFORMATION
  Report Type: 
  Country: None (occurrence: None)
  Receive Date: 20110617
  Receipt Date: 20110609
  Transmission Date: 20111010
  Serious: Yes (Other)
  Sender: FDA-Public Use
  Company Number: JP-JNJFOC-20110605823

PATIENT
  Age: 9 Decade
  Sex: Female

DRUGS (7)
  1. METHYCOBAL [Concomitant]
     Route: 065
  2. LASIX [Concomitant]
     Route: 065
  3. MICARDIS [Concomitant]
     Route: 065
  4. CARVEDILOL [Concomitant]
     Route: 065
  5. LANDEL [Concomitant]
     Route: 065
  6. ALDACTONE [Concomitant]
     Route: 065
  7. LEVOFLOXACIN [Suspect]
     Indication: GASTROENTERITIS VIRAL
     Route: 065

REACTIONS (3)
  - DELIRIUM [None]
  - HALLUCINATION [None]
  - OFF LABEL USE [None]
